FAERS Safety Report 8801871 (Version 3)
Quarter: 2013Q1

REPORT INFORMATION
  Report Type: Spontaneous
  Country: US (occurrence: US)
  Receive Date: 20120921
  Receipt Date: 20130221
  Transmission Date: 20140127
  Serious: No
  Sender: FDA-Public Use
  Company Number: US-PFIZER INC-2012232547

PATIENT
  Age: 64 Year
  Sex: Female
  Weight: 65.31 kg

DRUGS (17)
  1. REVATIO [Suspect]
     Indication: PULMONARY HYPERTENSION
     Dosage: 20 MG, 2X/DAY
     Route: 048
     Dates: start: 201207
  2. VITAMIN D [Concomitant]
     Indication: PAIN
     Dosage: 1 TABLET, 3 TIMES EVERY DAY AS NEEDED
     Route: 048
  3. TYLENOL [Concomitant]
     Dosage: 325 MG, EVERY 4 HOURS AS NEEDED
     Route: 048
  4. TOPICORT [Concomitant]
     Dosage: UNK, 2X/DAY TO THE AFFECTED AREA (S)
     Route: 061
  5. TESSALON [Concomitant]
     Dosage: 200 MG, 3 TIMES EVERY DAY AS NEEDED
     Route: 048
  6. SYMBICORT [Concomitant]
     Dosage: 160/4.5 MCG,2X/DAY(ACTUATION HFA AEROSOL INHALATION 2 PUFF 2 TIMES A DAY IN THE MORNING AND EVENING)
     Route: 055
  7. SALINE NASAL MIST [Concomitant]
     Dosage: UNK (SPRAY AEROSOL USE AS DIRECTED)
     Route: 045
  8. PROAIR HFA [Concomitant]
     Dosage: 90 UG, AS NEEDED ( INHALE 2 PUFF BY INHALATION ROUTE 4 TIMES EVERY DAY AS NEEDED)
     Route: 055
  9. PREDNISONE [Concomitant]
     Dosage: 20 MG, 3X/DAY
     Route: 048
  10. PREDNISONE [Concomitant]
     Dosage: 20 MG, 2X/DAY
     Route: 048
  11. PREDNISONE [Concomitant]
     Dosage: 20 MG, 1X/DAY
     Route: 048
  12. KETOCONAZOLE [Concomitant]
     Dosage: EVERY DAY TO THE AFFECTED AREA(S), LATHER, LEAVE IN PLACE FOR 5 MINUTES, THEN RINSE OFF WITH WATER
     Route: 061
  13. FUROSEMIDE [Concomitant]
     Dosage: 40 MG, 1X/DAY (EVERY DAY)
     Route: 048
  14. FLONASE [Concomitant]
     Dosage: 50 UG, 2X/DAY (ACTUATION NASAL SPRAY: INHALE 1 SPRAY BY INTRANASAL ROUTE 2 TIMES EVERY DAY)
     Route: 045
  15. ESTERIFIED ESTROGENS-METHYLTESTOSTERONE [Concomitant]
     Dosage: ESTERIFIED ESTROGENS 0.625MG/METHYLTESTOSTERONE 1.25MG, 1 PILL DAILY
  16. DIFLUCAN [Concomitant]
     Dosage: 150 MG, REPEAT AFTER 1 WEEK
     Route: 048
  17. ASPIRIN [Concomitant]
     Dosage: 81 MG, 1X/DAY (EVERYDAY)
     Route: 048

REACTIONS (1)
  - Decreased appetite [Unknown]
